FAERS Safety Report 20094898 (Version 1)
Quarter: 2021Q4

REPORT INFORMATION
  Report Type: Spontaneous
  Country: IN (occurrence: IN)
  Receive Date: 20211122
  Receipt Date: 20211122
  Transmission Date: 20220304
  Serious: Yes (Hospitalization, Other)
  Sender: FDA-Public Use
  Company Number: IN-QUAGEN-2021QUALIT00081

PATIENT
  Age: 20 Year
  Sex: Male

DRUGS (2)
  1. CYPROHEPTADINE HYDROCHLORIDE [Suspect]
     Active Substance: CYPROHEPTADINE HYDROCHLORIDE
     Indication: Steroid therapy
     Route: 065
  2. DEXAMETHASONE [Suspect]
     Active Substance: DEXAMETHASONE
     Indication: Steroid therapy
     Route: 065

REACTIONS (5)
  - Obsessive-compulsive disorder [Recovered/Resolved]
  - Drug interaction [Recovered/Resolved]
  - Suicide attempt [Unknown]
  - Product use in unapproved indication [Unknown]
  - Acne [Recovered/Resolved]
